FAERS Safety Report 7866351-3 (Version None)
Quarter: 2011Q4

REPORT INFORMATION
  Report Type: 
  Country: None (occurrence: None)
  Receive Date: 20111028
  Receipt Date: 20110603
  Transmission Date: 20120403
  Serious: No
  Sender: FDA-Public Use
  Company Number: US-GLAXOSMITHKLINE-A0930166A

PATIENT
  Sex: Female

DRUGS (3)
  1. ADVAIR DISKUS 100/50 [Suspect]
     Indication: ASTHMA
     Dosage: 1PUFF TWICE PER DAY
     Route: 055
  2. MEDICATION FOR HIGH BLOOD PRESSURE [Concomitant]
  3. DIABETES MEDICATION [Concomitant]
     Route: 048

REACTIONS (1)
  - DENTAL CARIES [None]
